FAERS Safety Report 4636551-4 (Version None)
Quarter: 2005Q2

REPORT INFORMATION
  Report Type: 
  Country: None (occurrence: None)
  Receive Date: 20050415
  Receipt Date: 20050404
  Transmission Date: 20051028
  Serious: Yes (Hospitalization, Disabling, Other)
  Sender: FDA-Public Use
  Company Number: PH-GLAXOSMITHKLINE-B0377945A

PATIENT
  Age: 71 Year
  Sex: Female

DRUGS (1)
  1. AVANDIA [Suspect]
     Indication: DIABETES MELLITUS
     Route: 048
     Dates: start: 20041030, end: 20050128

REACTIONS (3)
  - ABDOMINAL DISTENSION [None]
  - ANAEMIA [None]
  - FACE OEDEMA [None]
